FAERS Safety Report 24588172 (Version 1)
Quarter: 2024Q4

REPORT INFORMATION
  Report Type: Spontaneous
  Country: US (occurrence: US)
  Receive Date: 20241107
  Receipt Date: 20241107
  Transmission Date: 20250115
  Serious: No
  Sender: Haleon PLC
  Company Number: US-HALEON-2207177

PATIENT

DRUGS (1)
  1. ADVIL SINUS CONGESTION AND PAIN RELIEF [Suspect]
     Active Substance: IBUPROFEN\PHENYLEPHRINE HYDROCHLORIDE
     Indication: Influenza

REACTIONS (1)
  - Therapeutic response unexpected [Unknown]
